FAERS Safety Report 14935915 (Version 1)
Quarter: 2018Q2

REPORT INFORMATION
  Report Type: Spontaneous
  Country: FR (occurrence: FR)
  Receive Date: 20180524
  Receipt Date: 20180524
  Transmission Date: 20180711
  Serious: Yes (Other)
  Sender: FDA-Public Use
  Company Number: FR-GLAXOSMITHKLINE-FR2018GSK092641

PATIENT
  Sex: Male

DRUGS (3)
  1. NICOPATCH [Suspect]
     Active Substance: NICOTINE
     Indication: SMOKING CESSATION THERAPY
     Dosage: 14 MG, QD
     Route: 062
     Dates: start: 20180413, end: 20180427
  2. NICOPATCH [Suspect]
     Active Substance: NICOTINE
     Dosage: 21 MG, QD
     Route: 062
     Dates: start: 20180427, end: 20180511
  3. NICOPATCH [Suspect]
     Active Substance: NICOTINE
     Dosage: 21 MG, QD
     Route: 062
     Dates: start: 20180511

REACTIONS (5)
  - Product quality issue [Unknown]
  - Overdose [Unknown]
  - Nicotine dependence [Not Recovered/Not Resolved]
  - Treatment noncompliance [Unknown]
  - Drug ineffective [Unknown]

NARRATIVE: CASE EVENT DATE: 20180413
